FAERS Safety Report 12926456 (Version 4)
Quarter: 2016Q4

REPORT INFORMATION
  Report Type: Report from Study
  Country: None (occurrence: RO)
  Receive Date: 20161109
  Receipt Date: 20161216
  Transmission Date: 20170207
  Serious: Yes (Hospitalization)
  Sender: FDA-Public Use
  Company Number: RO-ABBVIE-16K-135-1772375-00

PATIENT
  Age: 62 Year
  Sex: Male
  Weight: 72 kg

DRUGS (1)
  1. DUODOPA [Suspect]
     Active Substance: CARBIDOPA\LEVODOPA
     Indication: PARKINSON^S DISEASE
     Dosage: MD=8.5ML, CR=5.8ML, ED=3.7ML
     Route: 050
     Dates: start: 20120420

REACTIONS (8)
  - Hypotension [Recovered/Resolved]
  - Device kink [Recovered/Resolved]
  - Calcinosis [Recovered/Resolved]
  - Vomiting [Recovered/Resolved]
  - Device dislocation [Unknown]
  - Intestinal obstruction [Recovered/Resolved]
  - Stoma site discharge [Recovered/Resolved]
  - Device dislocation [Recovered/Resolved]

NARRATIVE: CASE EVENT DATE: 2016
